FAERS Safety Report 4902105-5 (Version None)
Quarter: 2006Q1

REPORT INFORMATION
  Report Type: 
  Country: None (occurrence: None)
  Receive Date: 20060206
  Receipt Date: 20050512
  Transmission Date: 20060701
  Serious: Yes (Death, Hospitalization)
  Sender: FDA-Public Use
  Company Number: GB-ABBOTT-05P-167-0300477-00

PATIENT
  Sex: Female

DRUGS (9)
  1. EPILIM LIQUID [Suspect]
     Indication: DEMENTIA ALZHEIMER'S TYPE
     Route: 048
     Dates: start: 20040714, end: 20040921
  2. EPILIM LIQUID [Suspect]
     Route: 048
     Dates: start: 20040921
  3. DIGOXIN [Concomitant]
     Indication: DRUG USE FOR UNKNOWN INDICATION
     Route: 065
  4. HEART TABLETS [Concomitant]
     Indication: DRUG USE FOR UNKNOWN INDICATION
     Route: 065
  5. ACETYLSALICYLIC ACID SRT [Concomitant]
     Indication: DRUG USE FOR UNKNOWN INDICATION
     Route: 065
  6. FLUOXETINE [Concomitant]
     Indication: DRUG USE FOR UNKNOWN INDICATION
     Route: 065
  7. ANTIBIOTICS [Concomitant]
     Indication: INFECTION
  8. OLANZAPINE [Concomitant]
     Indication: DRUG USE FOR UNKNOWN INDICATION
     Route: 065
  9. FUROSEMIDE [Concomitant]
     Indication: DRUG USE FOR UNKNOWN INDICATION
     Route: 065
     Dates: end: 20040919

REACTIONS (17)
  - ABDOMINAL DISTENSION [None]
  - APHASIA [None]
  - BACK DISORDER [None]
  - BACK PAIN [None]
  - COMA [None]
  - DIFFICULTY IN WALKING [None]
  - DYSPHONIA [None]
  - ERYTHEMA [None]
  - FALL [None]
  - FEELING ABNORMAL [None]
  - INCORRECT DOSE ADMINISTERED [None]
  - KIDNEY ENLARGEMENT [None]
  - LOSS OF CONSCIOUSNESS [None]
  - MALAISE [None]
  - MULTIPLE DRUG OVERDOSE ACCIDENTAL [None]
  - SOPOR [None]
  - SWELLING [None]
